FAERS Safety Report 7026598-5 (Version None)
Quarter: 2010Q4

REPORT INFORMATION
  Report Type: 
  Country: None (occurrence: None)
  Receive Date: 20101004
  Receipt Date: 20100927
  Transmission Date: 20110411
  Serious: Yes (Hospitalization)
  Sender: FDA-Public Use
  Company Number: DE-SANOFI-AVENTIS-2010SA049124

PATIENT
  Age: 65 Year
  Sex: Male
  Weight: 75.8 kg

DRUGS (5)
  1. MULTAQ [Suspect]
     Indication: ATRIAL FIBRILLATION
     Route: 048
     Dates: start: 20100714, end: 20100817
  2. MULTAQ [Suspect]
     Route: 048
     Dates: start: 20100101, end: 20100101
  3. ALLOPURINOL [Concomitant]
     Indication: GOUT
     Route: 048
  4. METOPROLOL SUCCINATE [Concomitant]
     Indication: HYPERTENSION
     Route: 048
  5. PHENPROCOUMON [Concomitant]
     Indication: ANTICOAGULANT THERAPY
     Dosage: ACCORDING TO INR VALUE
     Route: 048

REACTIONS (6)
  - ASTHENIA [None]
  - HEPATITIS TOXIC [None]
  - JAUNDICE [None]
  - LIVER FUNCTION TEST ABNORMAL [None]
  - PRURITUS [None]
  - RASH [None]
